FAERS Safety Report 9964806 (Version 1)
Quarter: 2014Q1

REPORT INFORMATION
  Report Type: Spontaneous
  Country: US (occurrence: US)
  Receive Date: 20140305
  Receipt Date: 20140305
  Transmission Date: 20141002
  Serious: No
  Sender: FDA-Public Use
  Company Number: US-AMGEN-USASP2014003779

PATIENT
  Age: 56 Year
  Sex: Female

DRUGS (2)
  1. ENBREL [Suspect]
     Indication: RHEUMATOID ARTHRITIS
     Dosage: UNK UNK, QWK
     Route: 065
     Dates: start: 2007, end: 2009
  2. METHOTREXATE [Concomitant]
     Dosage: UNK

REACTIONS (4)
  - Vomiting [Not Recovered/Not Resolved]
  - Cough [Not Recovered/Not Resolved]
  - Pyrexia [Not Recovered/Not Resolved]
  - Chest pain [Not Recovered/Not Resolved]
